FAERS Safety Report 10090722 (Version 2)
Quarter: 2014Q2

REPORT INFORMATION
  Report Type: Report from Study
  Country: JP (occurrence: JP)
  Receive Date: 20140421
  Receipt Date: 20140506
  Transmission Date: 20141212
  Serious: Yes (Other)
  Sender: FDA-Public Use
  Company Number: JP-B.I. PHARMACEUTICALS,INC./RIDGEFIELD-2014-BI-17125NB

PATIENT
  Age: 64 Year
  Sex: Male
  Weight: 60.5 kg

DRUGS (2)
  1. PRAZAXA [Suspect]
     Indication: CEREBROVASCULAR ACCIDENT PROPHYLAXIS
     Dosage: 220 MG
     Route: 048
     Dates: start: 20130302, end: 20130318
  2. TAKEPRON / LANSOPRAZOLE [Concomitant]
     Dosage: 30 MG
     Route: 048

REACTIONS (2)
  - Colon cancer [Recovered/Resolved]
  - Lower gastrointestinal haemorrhage [Recovered/Resolved]
